FAERS Safety Report 6680733-7 (Version None)
Quarter: 2010Q2

REPORT INFORMATION
  Report Type: 
  Country: None (occurrence: None)
  Receive Date: 20100413
  Receipt Date: 20100413
  Transmission Date: 20101027
  Serious: Yes (Disabling)
  Sender: FDA-Public Use
  Company Number: None

PATIENT
  Sex: Male
  Weight: 88.905 kg

DRUGS (2)
  1. CLONAZEPAM [Suspect]
     Indication: EPILEPSY
     Dosage: 1 MG BID PO 1/2 MG BID PO PRIOR TO JANUARY 2007-12/09
     Route: 048
     Dates: end: 20091201
  2. CARBAMAZEPINE [Suspect]
     Indication: EPILEPSY
     Dosage: 200 MG QID PO
     Route: 048
     Dates: start: 20070101, end: 20091201

REACTIONS (1)
  - CONVULSION [None]
